FAERS Safety Report 10101550 (Version 2)
Quarter: 2014Q2

REPORT INFORMATION
  Report Type: Spontaneous
  Country: DE (occurrence: DE)
  Receive Date: 20140424
  Receipt Date: 20140429
  Transmission Date: 20141212
  Serious: Yes (Other)
  Sender: FDA-Public Use
  Company Number: DE-DRREDDYS-GER/GER/14/0039671

PATIENT
  Sex: Female

DRUGS (5)
  1. MEMANTINHYDROCHLORID BETA 10MG FILMTABLETTEN [Suspect]
     Indication: DEMENTIA ALZHEIMER^S TYPE
     Route: 048
  2. MEMANTINHYDROCHLORID BETA 10MG FILMTABLETTEN [Interacting]
     Route: 048
  3. MEMANTINHYDROCHLORID BETA 10MG FILMTABLETTEN [Interacting]
     Route: 048
  4. MEMANTINHYDROCHLORID BETA 10MG FILMTABLETTEN [Interacting]
     Route: 048
  5. GINGIUM [Interacting]
     Indication: PRODUCT USED FOR UNKNOWN INDICATION

REACTIONS (3)
  - Dementia Alzheimer^s type [Recovering/Resolving]
  - Disturbance in attention [Recovering/Resolving]
  - Drug interaction [Unknown]
